FAERS Safety Report 8978673 (Version 1)
Quarter: 2012Q4

REPORT INFORMATION
  Report Type: Spontaneous
  Country: US (occurrence: None)
  Receive Date: 20121218
  Receipt Date: 20121218
  Transmission Date: 20130627
  Serious: Yes (Life-Threatening, Hospitalization)
  Sender: FDA-Public Use
  Company Number: None

PATIENT
  Age: 20 Year
  Sex: Female
  Weight: 51.26 kg

DRUGS (1)
  1. MIRENA IUD [Suspect]
     Dates: start: 20110430, end: 20111208

REACTIONS (3)
  - Haemorrhage [None]
  - Abdominal pain [None]
  - Device dislocation [None]
